FAERS Safety Report 7101172-0 (Version None)
Quarter: 2010Q4

REPORT INFORMATION
  Report Type: 
  Country: None (occurrence: None)
  Receive Date: 20101105
  Receipt Date: 20101021
  Transmission Date: 20110411
  Serious: Yes (Disabling)
  Sender: FDA-Public Use
  Company Number: UTC-001725

PATIENT
  Age: 42 Year
  Sex: Female
  Weight: 100 kg

DRUGS (5)
  1. TYVASO [Suspect]
     Dosage: 144 MCG (36 MCG, 4 IN 1 D), INHALATION
     Route: 055
     Dates: start: 20100805
  2. LETAIRIS (AMBRISENTAN) [Concomitant]
  3. REVATIO [Concomitant]
  4. LASIX [Concomitant]
  5. POTASSIUM CHLORIDE [Concomitant]

REACTIONS (3)
  - FATIGUE [None]
  - HEADACHE [None]
  - NO THERAPEUTIC RESPONSE [None]
